FAERS Safety Report 19219908 (Version 6)
Quarter: 2021Q3

REPORT INFORMATION
  Report Type: Report from Study
  Country: CN (occurrence: CN)
  Receive Date: 20210505
  Receipt Date: 20210909
  Transmission Date: 20211014
  Serious: Yes (Hospitalization)
  Sender: FDA-Public Use
  Company Number: CN-B.I. PHARMACEUTICALS,INC./RIDGEFIELD-2021-BI-100235

PATIENT
  Age: 57 Year
  Sex: Male
  Weight: 76.1 kg

DRUGS (8)
  1. PANCREATIC KININOGENASE [Concomitant]
     Active Substance: KALLIDINOGENASE
     Indication: DIABETIC RETINOPATHY
     Dosage: ENTERIC?COATED TABLET
     Route: 048
     Dates: start: 201802
  2. LANTUS [Concomitant]
     Active Substance: INSULIN GLARGINE
     Indication: TYPE 2 DIABETES MELLITUS
     Route: 058
     Dates: start: 2018
  3. EUTHYROX [Concomitant]
     Active Substance: LEVOTHYROXINE SODIUM
     Indication: HYPOTHYROIDISM
     Route: 048
     Dates: start: 2013
  4. BAYASPIRIN [Concomitant]
     Active Substance: ASPIRIN
     Indication: ARTERIOSCLEROSIS
     Route: 048
     Dates: start: 201406
  5. LIU WEI DI HUANG [Concomitant]
     Indication: PROPHYLAXIS
     Dosage: PILLS
     Route: 048
     Dates: start: 2013
  6. PLACEBO [Suspect]
     Active Substance: UNSPECIFIED INGREDIENT
     Indication: TYPE 2 DIABETES MELLITUS
     Route: 048
     Dates: start: 20210210
  7. ROSUVASTATIN CALCIUM. [Concomitant]
     Active Substance: ROSUVASTATIN CALCIUM
     Indication: ARTERIOSCLEROSIS
     Route: 048
     Dates: start: 20210210
  8. METFORMIN HYDROCHLORIDE. [Concomitant]
     Active Substance: METFORMIN HYDROCHLORIDE
     Indication: TYPE 2 DIABETES MELLITUS
     Route: 048
     Dates: start: 2006

REACTIONS (5)
  - Ureterolithiasis [Recovered/Resolved]
  - Diverticulum intestinal [Not Recovered/Not Resolved]
  - Rectal neoplasm [Recovered/Resolved]
  - Ureterolithiasis [Recovered/Resolved]
  - Intestinal polyp [Not Recovered/Not Resolved]

NARRATIVE: CASE EVENT DATE: 20210417
